FAERS Safety Report 6107385-9 (Version None)
Quarter: 2009Q1

REPORT INFORMATION
  Report Type: 
  Country: None (occurrence: None)
  Receive Date: 20090309
  Receipt Date: 20090225
  Transmission Date: 20090719
  Serious: Yes (Hospitalization, Other)
  Sender: FDA-Public Use
  Company Number: RS-NOVOPROD-282957

PATIENT
  Sex: Female
  Weight: 66 kg

DRUGS (5)
  1. NOVORAPID [Suspect]
     Indication: TYPE 1 DIABETES MELLITUS
     Dosage: 24 UNK, UNK
     Route: 058
     Dates: start: 20071201
  2. LEVEMIR [Suspect]
     Indication: TYPE 1 DIABETES MELLITUS
     Dosage: 12 UNK, UNK
     Route: 058
     Dates: start: 20071201
  3. HEFEROL                            /00023505/ [Concomitant]
     Indication: ANAEMIA
     Dosage: 2 CAPS, 2X1
     Dates: start: 20080730, end: 20081030
  4. FOLAN [Concomitant]
     Dosage: 2 TAB, 2X1
     Dates: start: 20080730, end: 20081030
  5. EUTHYROX [Concomitant]
     Indication: HYPOTHYROIDISM
     Dosage: 25 UG, QD
     Dates: start: 20080730, end: 20081030

REACTIONS (2)
  - PRE-ECLAMPSIA [None]
  - PREGNANCY [None]
